FAERS Safety Report 6912490-0 (Version None)
Quarter: 2010Q3

REPORT INFORMATION
  Report Type: 
  Country: None (occurrence: None)
  Receive Date: 20100806
  Receipt Date: 20080714
  Transmission Date: 20110219
  Serious: No
  Sender: FDA-Public Use
  Company Number: US-PFIZER INC-2008059420

PATIENT
  Sex: Male
  Weight: 93.181 kg

DRUGS (1)
  1. GLUCOTROL XL [Suspect]
     Indication: BLOOD GLUCOSE ABNORMAL
     Route: 048
     Dates: start: 20050101

REACTIONS (1)
  - BLOOD GLUCOSE INCREASED [None]
